FAERS Safety Report 9548271 (Version 1)
Quarter: 2013Q2

REPORT INFORMATION
  Report Type: Spontaneous
  Country: US (occurrence: None)
  Receive Date: 20130524
  Receipt Date: 20130524
  Transmission Date: 20140414
  Serious: No
  Sender: FDA-Public Use
  Company Number: PHHY2012US110862

PATIENT
  Age: 52 Year
  Sex: Female

DRUGS (2)
  1. GILENYA (FTY) CAPSULE, 0.5MG [Suspect]
     Indication: MULTIPLE SCLEROSIS
     Route: 048
     Dates: start: 20121017
  2. BACLOFEN SANDOZ (NGX) (BACLOFEN) UNKNOWN [Suspect]

REACTIONS (5)
  - Muscle spasticity [None]
  - Musculoskeletal stiffness [None]
  - Hallucination [None]
  - Tremor [None]
  - Fall [None]
